FAERS Safety Report 8290234-0 (Version None)
Quarter: 2012Q2

REPORT INFORMATION
  Report Type: 
  Country: None (occurrence: None)
  Receive Date: 20120417
  Receipt Date: 20091122
  Transmission Date: 20120825
  Serious: Yes (Death, Hospitalization, Other)
  Sender: FDA-Public Use
  Company Number: US-BAYER-200940109NA

PATIENT
  Age: 47 Year
  Sex: Male
  Weight: 99.32 kg

DRUGS (31)
  1. TRAMADOL HCL [Concomitant]
     Dosage: 100 MG, QID
     Route: 048
  2. CLINDAMYCIN [Concomitant]
     Dosage: 600 MG, Q8H
     Route: 042
     Dates: start: 20050919, end: 20050920
  3. TRASYLOL [Suspect]
     Dosage: 200 ML LOADING DOSE
     Route: 042
     Dates: start: 20051207, end: 20051207
  4. LISINOPRIL [Concomitant]
     Indication: BLOOD PRESSURE ABNORMAL
     Dosage: 10 MG, QD
  5. SPIRONOLACTONE [Concomitant]
     Dosage: 25 MG, BID
     Route: 048
  6. DEMEROL [Concomitant]
     Dosage: 25 MG, UNK
     Route: 042
     Dates: start: 20051021, end: 20051021
  7. FENTANYL [Concomitant]
     Dosage: 5-5.5ML TIMES 3 DOSES
     Route: 042
     Dates: start: 20051207
  8. CEFAZOLIN [Concomitant]
     Dosage: 2 G, UNK
     Route: 042
     Dates: start: 20051207
  9. NITROGLYCERIN [Concomitant]
     Dosage: 50MG/250ML AT 3ML PER HOUR
     Dates: start: 20051207
  10. TRASYLOL [Suspect]
     Dosage: 50 ML/HR
     Route: 042
     Dates: start: 20051207, end: 20051207
  11. VERSED [Concomitant]
     Dosage: 1 MG, UNK
     Route: 042
     Dates: start: 20051021, end: 20051021
  12. PROTAMINE SULFATE [Concomitant]
     Dosage: 150ML, THEN 50MG
     Route: 042
     Dates: start: 20051207
  13. EPINEPHRINE [Concomitant]
     Dosage: 120 MCG
     Route: 042
     Dates: start: 20051207
  14. PLATELETS [Concomitant]
     Dosage: 20 U, UNK
     Route: 042
     Dates: start: 20051207, end: 20051207
  15. TRASYLOL [Suspect]
     Indication: CORONARY ARTERY BYPASS
     Dosage: 1 ML, UNK, TEST DOSE
     Route: 042
     Dates: start: 20051207, end: 20051207
  16. ASPIRIN [Concomitant]
     Dosage: 81 MG, QD
  17. VANCOMYCIN [Concomitant]
     Dosage: 1 G, Q12H
     Route: 042
     Dates: start: 20050920, end: 20050926
  18. ISOFLURANE [Concomitant]
     Dosage: 1.2% INHALED
     Dates: start: 20051207, end: 20051207
  19. CISATRACURIUM BESYLATE [Concomitant]
     Dosage: 20, THEN 10MG TIMES 4
     Route: 042
     Dates: start: 20051207
  20. LASIX [Concomitant]
     Indication: DIURETIC THERAPY
     Dosage: 40 MG, QD
     Route: 048
  21. LORTAB [Concomitant]
     Dosage: AS NEEDED FOR PAIN
  22. LISINOPRIL AND HYDROCHLOROTHIAZIDE [Concomitant]
     Dosage: 20-12.5MG, LONG TERM
     Route: 048
  23. FENTANYL [Concomitant]
     Dosage: 20-50 MCG
     Route: 042
     Dates: start: 20051021, end: 20051021
  24. FRESH FROZEN PLASMA [Concomitant]
     Dosage: 2 UNITS PREOPERATIVELY
     Route: 042
     Dates: start: 20051207, end: 20051207
  25. NAPROXEN (ALEVE) [Concomitant]
     Indication: PAIN
     Dosage: UP TO 220MG QD
     Route: 048
  26. LEVAQUIN [Concomitant]
     Dosage: 500 MG,  IV TO ORAL
     Dates: start: 20050922
  27. PENTOTHAL [Concomitant]
     Dosage: 250 MG, UNK
     Route: 042
     Dates: start: 20051207
  28. HEPARIN [Concomitant]
     Dosage: 15000 UNITS, THEN 5000 UNITS
     Route: 042
     Dates: start: 20051207
  29. ROXICODONE [Concomitant]
     Dosage: 5 MG, UNK
     Route: 048
  30. VANCOMYCIN [Concomitant]
     Dosage: 125 MG, Q6H
     Route: 048
     Dates: start: 20050926, end: 20050929
  31. FRESH FROZEN PLASMA [Concomitant]
     Dosage: 4 U, UNK, INTRAOPERATIVELY
     Route: 042
     Dates: start: 20051207, end: 20051207

REACTIONS (14)
  - DEATH [None]
  - RENAL FAILURE [None]
  - ANHEDONIA [None]
  - RENAL IMPAIRMENT [None]
  - UNEVALUABLE EVENT [None]
  - COAGULOPATHY [None]
  - ANXIETY [None]
  - FEAR [None]
  - INJURY [None]
  - MULTI-ORGAN FAILURE [None]
  - EMOTIONAL DISTRESS [None]
  - PAIN [None]
  - RENAL INJURY [None]
  - STRESS [None]
